FAERS Safety Report 13731438 (Version 1)
Quarter: 2017Q3

REPORT INFORMATION
  Report Type: Spontaneous
  Country: CH (occurrence: CH)
  Receive Date: 20170707
  Receipt Date: 20170707
  Transmission Date: 20171127
  Serious: Yes (Other)
  Sender: FDA-Public Use
  Company Number: CH-009507513-1706CHE009399

PATIENT
  Age: 27 Year
  Sex: Male

DRUGS (1)
  1. ZEPATIER [Suspect]
     Active Substance: ELBASVIR\GRAZOPREVIR
     Indication: CHRONIC HEPATITIS C
     Dosage: 1 DF, UNK
     Route: 048
     Dates: start: 20161116, end: 20170207

REACTIONS (1)
  - Hepatitis C [Unknown]

NARRATIVE: CASE EVENT DATE: 20170512
